FAERS Safety Report 13497842 (Version 1)
Quarter: 2017Q2

REPORT INFORMATION
  Report Type: Report from Study
  Country: US (occurrence: US)
  Receive Date: 20170428
  Receipt Date: 20170428
  Transmission Date: 20170830
  Serious: Yes (Other)
  Sender: FDA-Public Use
  Company Number: US-MALLINCKRODT-T201701357

PATIENT
  Age: 49 Year
  Sex: Male
  Weight: 95 kg

DRUGS (8)
  1. FOLIC ACID. [Concomitant]
     Active Substance: FOLIC ACID
  2. REPOSITORY CORTICOTROPIN INJECTION [Suspect]
     Active Substance: CORTICOTROPIN
     Indication: POLYMYOSITIS
     Dosage: 80 UNITS/ 1 ML, TWICE WEEKLY (MONDAY - THURSDAY)
     Route: 058
     Dates: start: 201701, end: 201701
  3. LASIX [Concomitant]
     Active Substance: FUROSEMIDE
     Dosage: PRN
  4. METOPROLOL. [Concomitant]
     Active Substance: METOPROLOL
  5. MULTIVITAMIN [Concomitant]
     Active Substance: VITAMINS
  6. REPOSITORY CORTICOTROPIN INJECTION [Suspect]
     Active Substance: CORTICOTROPIN
     Indication: DERMATOMYOSITIS
     Dosage: 80 UNITS/ 1 ML, TWICE WEEKLY (MONDAY - THURSDAY)
     Route: 058
     Dates: start: 201703
  7. OXYCONTIN [Concomitant]
     Active Substance: OXYCODONE HYDROCHLORIDE
     Dosage: Q4H PRN / ONE A DAY
  8. METHOTREXATE. [Concomitant]
     Active Substance: METHOTREXATE
     Dosage: 25 ONCE PER WEEK

REACTIONS (9)
  - Pollakiuria [Not Recovered/Not Resolved]
  - Fluid retention [Unknown]
  - Arthralgia [Unknown]
  - Irritability [Not Recovered/Not Resolved]
  - Vision blurred [Not Recovered/Not Resolved]
  - Hyperacusis [Not Recovered/Not Resolved]
  - Weight increased [Unknown]
  - Vitreous detachment [Recovering/Resolving]
  - Mobility decreased [Unknown]

NARRATIVE: CASE EVENT DATE: 201701
